FAERS Safety Report 16822459 (Version 1)
Quarter: 2019Q3

REPORT INFORMATION
  Report Type: Spontaneous
  Country: US (occurrence: US)
  Receive Date: 20190918
  Receipt Date: 20190918
  Transmission Date: 20191005
  Serious: No
  Sender: FDA-Public Use
  Company Number: US-PFIZER INC-2019401173

PATIENT
  Age: 39 Year
  Sex: Female

DRUGS (4)
  1. OXCARBAZEPINE. [Suspect]
     Active Substance: OXCARBAZEPINE
  2. CELEBREX [Suspect]
     Active Substance: CELECOXIB
  3. IMITREX [Suspect]
     Active Substance: SUMATRIPTAN SUCCINATE
  4. TORADOL [Suspect]
     Active Substance: KETOROLAC TROMETHAMINE

REACTIONS (1)
  - Drug hypersensitivity [Unknown]
